FAERS Safety Report 13250917 (Version 1)
Quarter: 2017Q1

REPORT INFORMATION
  Report Type: Spontaneous
  Country: US (occurrence: US)
  Receive Date: 20170220
  Receipt Date: 20170220
  Transmission Date: 20170428
  Serious: No
  Sender: FDA-Public Use
  Company Number: US-TEVA-720501ACC

PATIENT
  Age: 3 Year
  Sex: Female
  Weight: 15 kg

DRUGS (1)
  1. AMOXICILLIN FOR ORAL SUSPENSION [Suspect]
     Active Substance: AMOXICILLIN
     Indication: EAR INFECTION
     Dosage: SUSPENSION; 400 MG/5 ML
     Route: 048
     Dates: start: 20161210

REACTIONS (3)
  - Crying [Unknown]
  - Mood altered [Unknown]
  - Aggression [Unknown]

NARRATIVE: CASE EVENT DATE: 20161211
